FAERS Safety Report 9910284 (Version 3)
Quarter: 2014Q2

REPORT INFORMATION
  Report Type: Report from Study
  Country: RU (occurrence: RU)
  Receive Date: 20140219
  Receipt Date: 20140404
  Transmission Date: 20141212
  Serious: Yes (Death, Hospitalization)
  Sender: FDA-Public Use
  Company Number: RU-INCYTE CORPORATION-2014IN000269

PATIENT
  Age: 54 Year
  Sex: Female
  Weight: 58 kg

DRUGS (4)
  1. INC424 [Suspect]
     Indication: MYELOFIBROSIS
     Dosage: 25 MG, BID
     Route: 048
     Dates: start: 20130522, end: 20140128
  2. ALLOPURINOL [Concomitant]
     Dosage: UNK
     Dates: start: 20140101, end: 20140128
  3. DIUVER [Concomitant]
     Dosage: UNK
     Dates: start: 20140103, end: 20140128
  4. NEUROMULTIVIT [Concomitant]
     Dosage: UNK
     Dates: start: 20131119, end: 20140128

REACTIONS (2)
  - Anaemia [Fatal]
  - Gastrointestinal haemorrhage [Recovered/Resolved with Sequelae]
